FAERS Safety Report 6931344-7 (Version None)
Quarter: 2010Q3

REPORT INFORMATION
  Report Type: 
  Country: None (occurrence: None)
  Receive Date: 20100818
  Receipt Date: 20100805
  Transmission Date: 20110219
  Serious: Yes (Hospitalization, Other)
  Sender: FDA-Public Use
  Company Number: PHHY2010US51970

PATIENT
  Sex: Male

DRUGS (9)
  1. AFINITOR [Suspect]
     Dosage: UNK
  2. PHENYTOIN [Concomitant]
     Dosage: 5 ML
     Route: 048
  3. GABAPENTIN [Concomitant]
     Dosage: 600 MG
  4. AMLODIPINE BESYLATE [Concomitant]
  5. FAMOTIDINE [Concomitant]
     Dosage: 20 MG
  6. OMEPRAZOLE [Concomitant]
     Dosage: 20 MG
  7. ASPIRIN [Concomitant]
     Dosage: 81 MG
  8. HYDROXYZINE PAMOATE [Concomitant]
  9. CHERATUSSIN AC [Concomitant]
     Dosage: UNK

REACTIONS (5)
  - CEREBROVASCULAR ACCIDENT [None]
  - DYSPHAGIA [None]
  - PARALYSIS [None]
  - TRACHEOSTOMY [None]
  - VOCAL CORD PARALYSIS [None]
